FAERS Safety Report 21023176 (Version 1)
Quarter: 2022Q2

REPORT INFORMATION
  Report Type: Spontaneous
  Country: US (occurrence: None)
  Receive Date: 20220628
  Receipt Date: 20220628
  Transmission Date: 20220721
  Serious: Yes (unspecified)
  Sender: FDA-Public Use
  Company Number: None

PATIENT
  Age: 70 Year
  Sex: Female
  Weight: 75.75 kg

DRUGS (1)
  1. RECLAST [Suspect]
     Active Substance: ZOLEDRONIC ACID
     Dosage: FREQUENCY : EVERY YEAR;?

REACTIONS (7)
  - Bone pain [None]
  - Musculoskeletal chest pain [None]
  - Arthralgia [None]
  - Spinal pain [None]
  - Pelvic pain [None]
  - Insomnia [None]
  - Chest pain [None]

NARRATIVE: CASE EVENT DATE: 20220527
